FAERS Safety Report 5058024-X (Version None)
Quarter: 2006Q3

REPORT INFORMATION
  Report Type: 
  Country: None (occurrence: None)
  Receive Date: 20060721
  Receipt Date: 20060517
  Transmission Date: 20061208
  Serious: No
  Sender: FDA-Public Use
  Company Number: US-GLAXOSMITHKLINE-A0606061A

PATIENT
  Age: 57 Year
  Sex: Female

DRUGS (11)
  1. AVANDIA [Suspect]
     Dosage: 4MG PER DAY
     Route: 048
     Dates: start: 20030101
  2. GLIPIZIDE [Concomitant]
  3. ZOCOR [Concomitant]
  4. FLONASE [Concomitant]
  5. VIDOL [Concomitant]
  6. FISH OIL [Concomitant]
  7. MULTIVITAMIN [Concomitant]
  8. CALCIUM GLUCONATE [Concomitant]
  9. VITAMIN B12 INJECTION [Concomitant]
  10. VITAMINS C + E [Concomitant]
  11. CAPTOPRIL [Concomitant]

REACTIONS (3)
  - OEDEMA [None]
  - PALPITATIONS [None]
  - WEIGHT INCREASED [None]
